APPROVED DRUG PRODUCT: GLYCOPYRROLATE
Active Ingredient: GLYCOPYRROLATE
Strength: 1MG/5ML
Dosage Form/Route: SOLUTION;ORAL
Application: A216368 | Product #001 | TE Code: AA
Applicant: CHARTWELL RX SCIENCES LLC
Approved: Aug 28, 2024 | RLD: No | RS: No | Type: RX